FAERS Safety Report 9221132 (Version 1)
Quarter: 2013Q2

REPORT INFORMATION
  Report Type: Spontaneous
  Country: US (occurrence: US)
  Receive Date: 20130409
  Receipt Date: 20130409
  Transmission Date: 20140414
  Serious: No
  Sender: FDA-Public Use
  Company Number: US-009507513-1304USA001297

PATIENT
  Sex: Female

DRUGS (2)
  1. JANUMET [Suspect]
     Route: 048
  2. JANUVIA [Suspect]
     Route: 048

REACTIONS (1)
  - Abdominal discomfort [Unknown]
